FAERS Safety Report 17544862 (Version 1)
Quarter: 2020Q1

REPORT INFORMATION
  Report Type: Spontaneous
  Country: US (occurrence: US)
  Receive Date: 20200316
  Receipt Date: 20200316
  Transmission Date: 20200409
  Serious: No
  Sender: FDA-Public Use
  Company Number: US-VERTEX PHARMACEUTICALS-2020-005253

PATIENT
  Age: 21 Year
  Sex: Male
  Weight: 77 kg

DRUGS (10)
  1. TRIKAFTA [Suspect]
     Active Substance: ELEXACAFTOR\IVACAFTOR\TEZACAFTOR
     Indication: CYSTIC FIBROSIS
     Dosage: 2 TABS AM AND 1 TAB PM
     Route: 048
     Dates: start: 20200228
  2. RANITIDINE HCL [Concomitant]
     Active Substance: RANITIDINE HYDROCHLORIDE
     Dosage: UNK
  3. ALBUTEROL SULFATE. [Concomitant]
     Active Substance: ALBUTEROL SULFATE
     Dosage: UNK
  4. CAYSTON [Concomitant]
     Active Substance: AZTREONAM
     Dosage: UNK
  5. FLONASE [MOMETASONE FUROATE] [Concomitant]
     Active Substance: MOMETASONE FUROATE
     Dosage: UNK
  6. CREON [Concomitant]
     Active Substance: PANCRELIPASE AMYLASE\PANCRELIPASE LIPASE\PANCRELIPASE PROTEASE
     Dosage: UNK
  7. TOBRAMYCIN. [Concomitant]
     Active Substance: TOBRAMYCIN
     Dosage: UNK
  8. PULMOZYME [Concomitant]
     Active Substance: DORNASE ALFA
     Dosage: UNK
  9. TOBI [Concomitant]
     Active Substance: TOBRAMYCIN
     Dosage: UNK
  10. SODIUM CHLORIDE. [Concomitant]
     Active Substance: SODIUM CHLORIDE
     Dosage: 7%

REACTIONS (6)
  - Headache [Unknown]
  - Nausea [Unknown]
  - Eye pain [Unknown]
  - Wheezing [Unknown]
  - Chest discomfort [Not Recovered/Not Resolved]
  - Productive cough [Unknown]

NARRATIVE: CASE EVENT DATE: 202002
